FAERS Safety Report 4676753-4 (Version None)
Quarter: 2005Q2

REPORT INFORMATION
  Report Type: 
  Country: None (occurrence: None)
  Receive Date: 20050527
  Receipt Date: 20050401
  Transmission Date: 20051028
  Serious: Yes (Hospitalization)
  Sender: FDA-Public Use
  Company Number: US-MERCK-0504USA01213

PATIENT
  Age: 85 Year
  Sex: Female
  Weight: 48 kg

DRUGS (7)
  1. PRINIVIL [Suspect]
     Route: 048
     Dates: end: 20040301
  2. LASIX [Suspect]
     Indication: OEDEMA
     Route: 065
     Dates: start: 20040820
  3. LASIX [Suspect]
     Route: 065
     Dates: end: 20040301
  4. FOSAMAX [Concomitant]
     Indication: OSTEOPOROSIS
     Route: 048
     Dates: start: 20040901
  5. PREVACID [Concomitant]
     Indication: GASTROOESOPHAGEAL REFLUX DISEASE
     Route: 048
  6. NORVASC [Concomitant]
     Indication: HYPERTENSION
     Route: 048
     Dates: start: 20040401
  7. TENORETIC 100 [Concomitant]
     Indication: HYPERTENSION
     Route: 048

REACTIONS (6)
  - ANGINA PECTORIS [None]
  - ARTHRITIS BACTERIAL [None]
  - BLOOD CREATININE INCREASED [None]
  - DYSPNOEA EXERTIONAL [None]
  - HEADACHE [None]
  - SHOULDER PAIN [None]
